FAERS Safety Report 10459086 (Version 1)
Quarter: 2014Q3

REPORT INFORMATION
  Report Type: Spontaneous
  Country: US (occurrence: None)
  Receive Date: 20140915
  Receipt Date: 20140915
  Transmission Date: 20150326
  Serious: Yes (Other)
  Sender: FDA-Public Use
  Company Number: 2014-US-011358

PATIENT
  Age: 40 Year
  Sex: Female
  Weight: 90.7 kg

DRUGS (2)
  1. METFORMIN HCL (METFORMIN HYDROCHLORIDE) [Concomitant]
  2. XYREM [Suspect]
     Active Substance: SODIUM OXYBATE
     Indication: NARCOLEPSY
     Route: 048
     Dates: start: 201011

REACTIONS (1)
  - Postpartum depression [None]

NARRATIVE: CASE EVENT DATE: 201404
